FAERS Safety Report 5024882-8 (Version None)
Quarter: 2006Q2

REPORT INFORMATION
  Report Type: 
  Country: None (occurrence: None)
  Receive Date: 20060613
  Receipt Date: 20060307
  Transmission Date: 20061013
  Serious: Yes (Other)
  Sender: FDA-Public Use
  Company Number: PHEH2006US03149

PATIENT
  Age: 50 Year
  Sex: Male

DRUGS (2)
  1. RITALIN [Suspect]
     Indication: ATTENTION DEFICIT/HYPERACTIVITY DISORDER
     Dosage: 120 MG, QD
     Route: 048
  2. RITALIN [Suspect]
     Dosage: 20 MG, TID
     Route: 048
     Dates: start: 19960101

REACTIONS (15)
  - ASTHENIA [None]
  - CARDIAC DISORDER [None]
  - CLOSTRIDIAL INFECTION [None]
  - DRUG ABUSER [None]
  - DRUG INEFFECTIVE [None]
  - DYSPNOEA [None]
  - EXTRASYSTOLES [None]
  - HEARING IMPAIRED [None]
  - HYPOAESTHESIA [None]
  - HYPOAESTHESIA ORAL [None]
  - LYME DISEASE [None]
  - NEOPLASM MALIGNANT [None]
  - PHARMACEUTICAL PRODUCT COMPLAINT [None]
  - THERAPEUTIC AGENT TOXICITY [None]
  - TOOTH INFECTION [None]
